FAERS Safety Report 16570653 (Version 1)
Quarter: 2019Q3

REPORT INFORMATION
  Report Type: Spontaneous
  Country: US (occurrence: US)
  Receive Date: 20190712
  Receipt Date: 20190712
  Transmission Date: 20191004
  Serious: No
  Sender: FDA-Public Use
  Company Number: None

PATIENT
  Age: 67 Year
  Sex: Female
  Weight: 96.75 kg

DRUGS (13)
  1. FORTEO [Suspect]
     Active Substance: TERIPARATIDE
     Indication: OSTEOPOROSIS
     Dosage: ?          QUANTITY:1 INJECTION(S);?
     Route: 058
     Dates: start: 20190612, end: 20190628
  2. PROGRAF [Concomitant]
     Active Substance: TACROLIMUS\TACROLIMUS ANHYDROUS
  3. OMEPRAZILE [Concomitant]
  4. CALCIUM-MAGNESIUM-ZINC [Concomitant]
  5. GLIPIZIDE. [Concomitant]
     Active Substance: GLIPIZIDE
  6. CALCITRIOL. [Concomitant]
     Active Substance: CALCITRIOL
  7. LEVOTHYROXINE. [Concomitant]
     Active Substance: LEVOTHYROXINE
  8. CALCITRIOL. [Concomitant]
     Active Substance: CALCITRIOL
  9. AMOXICILLIN. [Concomitant]
     Active Substance: AMOXICILLIN
  10. NOVOLOG [Concomitant]
     Active Substance: INSULIN ASPART
  11. AMLODIPINE [Concomitant]
     Active Substance: AMLODIPINE BESYLATE
  12. SIMVASTATIN. [Concomitant]
     Active Substance: SIMVASTATIN
  13. OXYCODONE [Concomitant]
     Active Substance: OXYCODONE

REACTIONS (3)
  - Palpitations [None]
  - Headache [None]
  - Back pain [None]

NARRATIVE: CASE EVENT DATE: 20190612
